FAERS Safety Report 15097492 (Version 4)
Quarter: 2018Q3

REPORT INFORMATION
  Report Type: Spontaneous
  Country: JP (occurrence: JP)
  Receive Date: 20180702
  Receipt Date: 20180910
  Transmission Date: 20181010
  Serious: Yes (Life-Threatening, Hospitalization, Other)
  Sender: FDA-Public Use
  Company Number: JP-GLAXOSMITHKLINE-JP2018116807

PATIENT
  Age: 63 Year
  Sex: Male

DRUGS (5)
  1. LITHIUM CARBONATE. [Suspect]
     Active Substance: LITHIUM CARBONATE
     Indication: PRODUCT USED FOR UNKNOWN INDICATION
     Dosage: UNK
     Route: 065
  2. LAMOTRIGINE. [Suspect]
     Active Substance: LAMOTRIGINE
     Indication: PRODUCT USED FOR UNKNOWN INDICATION
     Dosage: UNK
     Route: 065
  3. LAMOTRIGINE. [Suspect]
     Active Substance: LAMOTRIGINE
     Dosage: 100 MG, BID
     Route: 065
     Dates: end: 201407
  4. ETIZOLAM [Suspect]
     Active Substance: ETIZOLAM
     Indication: PRODUCT USED FOR UNKNOWN INDICATION
     Dosage: UNK
     Route: 065
  5. ZOLPIDEM [Suspect]
     Active Substance: ZOLPIDEM\ZOLPIDEM TARTRATE
     Indication: PRODUCT USED FOR UNKNOWN INDICATION
     Dosage: UNK
     Route: 065

REACTIONS (15)
  - Intentional overdose [Recovering/Resolving]
  - Chronic kidney disease [Unknown]
  - Hypokalaemia [Unknown]
  - Leukoencephalopathy [Recovered/Resolved with Sequelae]
  - Tachypnoea [Unknown]
  - Irritability [Unknown]
  - Hypoxia [Recovering/Resolving]
  - Leukocytosis [Unknown]
  - Tachycardia [Unknown]
  - Hypotension [Unknown]
  - Anaemia [Unknown]
  - Shock [Unknown]
  - Respiratory acidosis [Recovering/Resolving]
  - Hepatic function abnormal [Unknown]
  - Coma [Recovered/Resolved]
